FAERS Safety Report 24627374 (Version 1)
Quarter: 2024Q4

REPORT INFORMATION
  Report Type: Report from Study
  Country: IT (occurrence: IT)
  Receive Date: 20241116
  Receipt Date: 20241116
  Transmission Date: 20250115
  Serious: Yes (Other)
  Sender: TEVA
  Company Number: None

PATIENT
  Age: 72 Year
  Sex: Male
  Weight: 74 kg

DRUGS (3)
  1. FLUOROURACIL [Suspect]
     Active Substance: FLUOROURACIL
     Indication: Rectal adenocarcinoma
     Dosage: FOLFIRINOX FROM THE 1ST CYCLE 260 MG IV OF IRINOTECAN + 145 MG IV OXALIPLATIN + 350 MG IV FOLINIC...
     Route: 042
     Dates: start: 20231214, end: 20240306
  2. IRINOTECAN [Suspect]
     Active Substance: IRINOTECAN
     Indication: Rectal adenocarcinoma
     Dosage: FOLFIRINOX FROM THE 1ST CYCLE 260 MG IV OF IRINOTECAN + 145 MG IV OXALIPLATIN + 350 MG IV FOLINIC...
     Route: 042
     Dates: start: 20231214, end: 20240306
  3. OXALIPLATIN [Suspect]
     Active Substance: OXALIPLATIN
     Indication: Rectal adenocarcinoma
     Dosage: FOLFIRINOX FROM THE 1ST CYCLE 260 MG IV OF IRINOTECAN + 145 MG IV OXALIPLATIN + 350 MG IV FOLINIC...
     Route: 042
     Dates: start: 20231214, end: 20240306

REACTIONS (3)
  - Neutropenia [Recovered/Resolved]
  - Asthenia [Recovered/Resolved]
  - Paraesthesia [Recovered/Resolved]

NARRATIVE: CASE EVENT DATE: 20240213
